FAERS Safety Report 6379088-7 (Version None)
Quarter: 2009Q3

REPORT INFORMATION
  Report Type: 
  Country: None (occurrence: None)
  Receive Date: 20090928
  Receipt Date: 20090922
  Transmission Date: 20100115
  Serious: Yes (Hospitalization)
  Sender: FDA-Public Use
  Company Number: DE-BAYER-200933339GPV

PATIENT
  Age: 40 Year
  Sex: Male

DRUGS (2)
  1. AVELOX [Suspect]
     Indication: CHOLECYSTITIS ACUTE
     Dosage: UNIT DOSE: 400 MG
     Route: 042
     Dates: start: 20090312, end: 20090313
  2. AVELOX [Suspect]
     Dosage: UNIT DOSE: 400 MG
     Route: 048
     Dates: start: 20090314, end: 20090316

REACTIONS (1)
  - CHOLECYSTITIS ACUTE [None]
